FAERS Safety Report 11191787 (Version 1)
Quarter: 2015Q2

REPORT INFORMATION
  Report Type: Spontaneous
  Country: US (occurrence: None)
  Receive Date: 20150615
  Receipt Date: 20150615
  Transmission Date: 20150821
  Serious: Yes (Other)
  Sender: FDA-Public Use
  Company Number: None

PATIENT
  Age: 66 Year
  Sex: Female

DRUGS (9)
  1. NYSTOP [Concomitant]
     Active Substance: NYSTATIN
  2. TEMAZEPAM. [Concomitant]
     Active Substance: TEMAZEPAM
  3. BUPROPRION XL [Concomitant]
     Active Substance: BUPROPION
  4. HALOPERIDOL. [Concomitant]
     Active Substance: HALOPERIDOL
  5. XENAZINE [Suspect]
     Active Substance: TETRABENAZINE
     Indication: HUNTINGTON^S DISEASE
     Route: 048
     Dates: start: 201506
  6. GLIPIZIDE. [Concomitant]
     Active Substance: GLIPIZIDE
  7. NORCO [Concomitant]
     Active Substance: ACETAMINOPHEN\HYDROCODONE BITARTRATE
  8. GABAPENTIN. [Concomitant]
     Active Substance: GABAPENTIN
  9. AUGMENTIN [Concomitant]
     Active Substance: AMOXICILLIN\CLAVULANATE POTASSIUM

REACTIONS (3)
  - Somnolence [None]
  - Decreased appetite [None]
  - Dizziness [None]

NARRATIVE: CASE EVENT DATE: 20150611
